FAERS Safety Report 11815325 (Version 1)
Quarter: 2015Q4

REPORT INFORMATION
  Report Type: Spontaneous
  Country: US (occurrence: US)
  Receive Date: 20151209
  Receipt Date: 20151209
  Transmission Date: 20160305
  Serious: Yes (Disabling, Other)
  Sender: FDA-Public Use
  Company Number: US-APOTEX-2015AP015081

PATIENT
  Age: 28 Year
  Sex: Female

DRUGS (2)
  1. LEVOFLOXACIN TABLETS [Suspect]
     Active Substance: LEVOFLOXACIN
     Indication: SINUS DISORDER
     Dosage: 750 MG, PER DAY
     Route: 065
  2. HYDROCODONE [Concomitant]
     Active Substance: HYDROCODONE
     Indication: PAIN
     Dosage: UNK, PRN
     Route: 065

REACTIONS (23)
  - Sleep disorder [Unknown]
  - Metabolic disorder [Unknown]
  - Visual impairment [Unknown]
  - Peripheral coldness [Unknown]
  - Cognitive disorder [Unknown]
  - Muscle spasms [Unknown]
  - Bedridden [Unknown]
  - Gastrointestinal disorder [Unknown]
  - Myalgia [Unknown]
  - Tendon disorder [Unknown]
  - Fatigue [Unknown]
  - Muscle atrophy [Unknown]
  - Muscle contractions involuntary [Unknown]
  - Dyspnoea [Unknown]
  - Arthralgia [Unknown]
  - Affective disorder [Unknown]
  - Cardiovascular disorder [Unknown]
  - Sensory disturbance [Unknown]
  - Muscular weakness [Unknown]
  - Pain [Unknown]
  - Confusional state [Unknown]
  - Neuropathy peripheral [Unknown]
  - Dry eye [Unknown]
